FAERS Safety Report 15964721 (Version 4)
Quarter: 2019Q2

REPORT INFORMATION
  Report Type: Spontaneous
  Country: US (occurrence: US)
  Receive Date: 20190215
  Receipt Date: 20190528
  Transmission Date: 20190711
  Serious: Yes (Other)
  Sender: FDA-Public Use
  Company Number: US-GLAXOSMITHKLINE-US2019GSK026964

PATIENT
  Sex: Male

DRUGS (4)
  1. PREVACID [Suspect]
     Active Substance: LANSOPRAZOLE
     Indication: PRODUCT USED FOR UNKNOWN INDICATION
     Dosage: 30 MG, BID
     Route: 065
  2. PREVACID [Suspect]
     Active Substance: LANSOPRAZOLE
     Dosage: 30 MG, QD
     Route: 065
  3. PANTOPRAZOLE [Suspect]
     Active Substance: PANTOPRAZOLE
     Indication: PRODUCT USED FOR UNKNOWN INDICATION
     Dosage: 40 MG, QD
     Route: 048
  4. PREVACID [Suspect]
     Active Substance: LANSOPRAZOLE
     Indication: PRODUCT USED FOR UNKNOWN INDICATION
     Dosage: UNK
     Route: 065

REACTIONS (18)
  - Renal cyst [Unknown]
  - Blood creatinine increased [Unknown]
  - Chronic kidney disease [Unknown]
  - Glomerulonephritis membranous [Unknown]
  - Nephrotic syndrome [Unknown]
  - Nephropathy [Unknown]
  - Diabetic nephropathy [Unknown]
  - Nephritic syndrome [Unknown]
  - Hydronephrosis [Unknown]
  - Proteinuria [Unknown]
  - Haematuria [Unknown]
  - Renal disorder [Unknown]
  - Nephrolithiasis [Unknown]
  - Glomerulonephropathy [Unknown]
  - Dysuria [Unknown]
  - Renal failure [Unknown]
  - Calculus urinary [Unknown]
  - Nephrogenic anaemia [Unknown]
